FAERS Safety Report 19928806 (Version 1)
Quarter: 2021Q4

REPORT INFORMATION
  Report Type: Spontaneous
  Country: PE (occurrence: PE)
  Receive Date: 20211007
  Receipt Date: 20211007
  Transmission Date: 20220303
  Serious: Yes (Life-Threatening, Hospitalization, Other)
  Sender: FDA-Public Use
  Company Number: PE-GLAXOSMITHKLINE-PE2021AMR204647

PATIENT
  Age: 20 Year
  Sex: Female

DRUGS (5)
  1. LAMOTRIGINE [Suspect]
     Active Substance: LAMOTRIGINE
     Indication: Hypomania
     Dosage: 50 MG DAILY
     Route: 048
  2. LAMOTRIGINE [Suspect]
     Active Substance: LAMOTRIGINE
     Indication: Bipolar II disorder
     Dosage: 100 MG DAILY
     Route: 048
  3. SERTRALINE [Concomitant]
     Active Substance: SERTRALINE HYDROCHLORIDE
     Indication: Major depression
     Dosage: 100 MG DAILY
  4. SERTRALINE [Concomitant]
     Active Substance: SERTRALINE HYDROCHLORIDE
     Indication: Social anxiety disorder
     Dosage: 75 MG DAILY
  5. CLONAZEPAM [Concomitant]
     Active Substance: CLONAZEPAM
     Indication: Product used for unknown indication
     Dosage: UNK

REACTIONS (26)
  - Toxic epidermal necrolysis [Recovered/Resolved]
  - Headache [Recovered/Resolved]
  - Condition aggravated [Recovered/Resolved]
  - Rash macular [Recovered/Resolved]
  - Lip swelling [Recovered/Resolved]
  - Eye pain [Recovered/Resolved]
  - Conjunctival hyperaemia [Recovered/Resolved]
  - Lacrimation increased [Recovered/Resolved]
  - Odynophagia [Recovered/Resolved]
  - Rash vesicular [Recovered/Resolved]
  - Pharyngitis [Recovered/Resolved]
  - Skin exfoliation [Recovered/Resolved]
  - Salivary hypersecretion [Recovered/Resolved]
  - Pruritus [Recovered/Resolved]
  - Eye irritation [Recovered/Resolved]
  - Pyrexia [Recovered/Resolved]
  - Oral disorder [Recovered/Resolved]
  - Dry eye [Recovered/Resolved]
  - Photophobia [Recovered/Resolved]
  - Macule [Recovered/Resolved]
  - Pain [Recovered/Resolved]
  - Purpura [Recovered/Resolved]
  - Skin burning sensation [Recovered/Resolved]
  - Nikolsky^s sign [Recovered/Resolved]
  - Blister [Recovered/Resolved]
  - Incorrect dose administered [Unknown]
